FAERS Safety Report 20743755 (Version 4)
Quarter: 2024Q4

REPORT INFORMATION
  Report Type: Spontaneous
  Country: JP (occurrence: JP)
  Receive Date: 20220425
  Receipt Date: 20241128
  Transmission Date: 20250115
  Serious: Yes (Other)
  Sender: CELLTRION
  Company Number: JP-CELLTRION INC.-2020JP024390

PATIENT

DRUGS (10)
  1. INFLIXIMAB [Suspect]
     Active Substance: INFLIXIMAB
     Indication: Crohn^s disease
     Dosage: 270 MG (PATIENT WEIGHT: 54 KG)
     Route: 041
     Dates: start: 20181125, end: 20181125
  2. INFLIXIMAB [Suspect]
     Active Substance: INFLIXIMAB
     Dosage: 270 MG (PATIENT WEIGHT: 54 KG)
     Route: 041
     Dates: start: 20190119, end: 20190119
  3. INFLIXIMAB [Suspect]
     Active Substance: INFLIXIMAB
     Dosage: 275 MG (PATIENT WEIGHT: 55 KG)
     Route: 041
     Dates: start: 20190316, end: 20190316
  4. INFLIXIMAB [Suspect]
     Active Substance: INFLIXIMAB
     Dosage: 265 MG (PATIENT WEIGHT: 53 KG)
     Route: 041
     Dates: start: 20190504, end: 20190504
  5. INFLIXIMAB [Suspect]
     Active Substance: INFLIXIMAB
     Dosage: 270 MG (PATIENT WEIGHT: 54 KG)
     Route: 041
     Dates: start: 20191221, end: 20191221
  6. INFLIXIMAB [Suspect]
     Active Substance: INFLIXIMAB
     Dosage: 270 MG (PATIENT WEIGHT: 54 KG)
     Route: 041
     Dates: start: 20201112, end: 20201112
  7. INFLIXIMAB [Suspect]
     Active Substance: INFLIXIMAB
     Dosage: 270 MG (PATIENT WEIGHT: 54 KG)
     Route: 041
     Dates: start: 20211212, end: 20211212
  8. INFLIXIMAB [Suspect]
     Active Substance: INFLIXIMAB
     Dosage: 550 MG (PATIENT WEIGHT: 54.6 KG)
     Route: 041
     Dates: start: 20221127, end: 20221127
  9. INFLIXIMAB [Suspect]
     Active Substance: INFLIXIMAB
     Dosage: 520 MG (PATIENT WEIGHT: 52.4 KG)
     Route: 041
     Dates: start: 20231111, end: 20231111
  10. MESALAMINE [Concomitant]
     Active Substance: MESALAMINE
     Dosage: 3000 MILLIGRAM/DAY
     Route: 048

REACTIONS (12)
  - Rectal polyp [Recovered/Resolved]
  - Rectal polyp [Recovered/Resolved]
  - Otorrhoea [Recovered/Resolved]
  - Menopausal symptoms [Unknown]
  - Cystitis [Recovered/Resolved]
  - Influenza [Recovered/Resolved]
  - Gastroenteritis [Recovered/Resolved]
  - Abdominal pain upper [Recovered/Resolved]
  - Nasopharyngitis [Recovered/Resolved]
  - Intentional product use issue [Unknown]
  - Therapeutic product effect decreased [Unknown]
  - Overdose [Unknown]

NARRATIVE: CASE EVENT DATE: 20190608
